FAERS Safety Report 13879908 (Version 2)
Quarter: 2017Q3

REPORT INFORMATION
  Report Type: Report from Study
  Country: US (occurrence: US)
  Receive Date: 20170818
  Receipt Date: 20170924
  Transmission Date: 20171127
  Serious: No
  Sender: FDA-Public Use
  Company Number: US-AMGEN-USASL2017123332

PATIENT
  Age: 63 Year
  Sex: Female

DRUGS (3)
  1. ENBREL [Suspect]
     Active Substance: ETANERCEPT
     Dosage: UNK, QWK
     Route: 065
  2. ENBREL [Suspect]
     Active Substance: ETANERCEPT
     Indication: PRODUCT USED FOR UNKNOWN INDICATION
     Dosage: UNK, QWK
     Route: 065
  3. METFORMIN [Concomitant]
     Active Substance: METFORMIN HYDROCHLORIDE
     Indication: DIABETES MELLITUS
     Dosage: UNK

REACTIONS (10)
  - Urinary tract infection [Unknown]
  - Fatigue [Unknown]
  - Mobility decreased [Unknown]
  - Therapeutic response unexpected [Unknown]
  - Injection site pruritus [Recovered/Resolved]
  - Hypoglycaemia [Unknown]
  - Condition aggravated [Unknown]
  - Pain [Unknown]
  - Injection site rash [Unknown]
  - Memory impairment [Unknown]

NARRATIVE: CASE EVENT DATE: 20170912
